FAERS Safety Report 14798120 (Version 5)
Quarter: 2022Q1

REPORT INFORMATION
  Report Type: Spontaneous
  Country: US (occurrence: US)
  Receive Date: 20180424
  Receipt Date: 20220308
  Transmission Date: 20220423
  Serious: Yes (Death, Other)
  Sender: FDA-Public Use
  Company Number: US-TAKEDA-2018TUS012332

PATIENT

DRUGS (64)
  1. PROTONIX [Suspect]
     Active Substance: PANTOPRAZOLE SODIUM
     Indication: Gastrooesophageal reflux disease
     Dosage: UNK
     Route: 048
     Dates: start: 198909, end: 201706
  2. PROTONIX [Suspect]
     Active Substance: PANTOPRAZOLE SODIUM
     Dosage: 40 MILLIGRAM, QD
     Route: 048
     Dates: start: 20150101, end: 20161013
  3. PROTONIX [Suspect]
     Active Substance: PANTOPRAZOLE SODIUM
     Dosage: 40 MILLIGRAM, QD
     Route: 048
     Dates: start: 20070501, end: 20161013
  4. PANTOPRAZOLE [Suspect]
     Active Substance: PANTOPRAZOLE
     Indication: Product used for unknown indication
     Dosage: UNK
     Route: 048
  5. DEXILANT [Suspect]
     Active Substance: DEXLANSOPRAZOLE
     Indication: Product used for unknown indication
     Dosage: UNK
     Route: 048
     Dates: start: 198909, end: 201706
  6. PREVACID [Suspect]
     Active Substance: LANSOPRAZOLE
     Indication: Gastrooesophageal reflux disease
     Dosage: UNK
     Route: 048
     Dates: start: 198909, end: 201706
  7. PREVACID [Suspect]
     Active Substance: LANSOPRAZOLE
     Dosage: 30 MILLIGRAM, QD
     Route: 048
     Dates: start: 20090201, end: 20111231
  8. PREVACID [Suspect]
     Active Substance: LANSOPRAZOLE
     Dosage: 40 MILLIGRAM, QD
     Route: 048
  9. PREVACID [Suspect]
     Active Substance: LANSOPRAZOLE
     Dosage: 30 MILLIGRAM, QD
     Route: 048
     Dates: start: 20070501, end: 20161013
  10. LANSOPRAZOLE [Suspect]
     Active Substance: LANSOPRAZOLE
     Indication: Product used for unknown indication
     Dosage: UNK
     Route: 048
  11. PREVACID 24 HR [Suspect]
     Active Substance: LANSOPRAZOLE
     Indication: Product used for unknown indication
     Dosage: UNK
     Route: 065
     Dates: start: 198909, end: 201706
  12. PREVACID 24 HR [Suspect]
     Active Substance: LANSOPRAZOLE
     Dosage: UNK
     Route: 048
     Dates: start: 200705, end: 201610
  13. PREVACID 24 HR [Suspect]
     Active Substance: LANSOPRAZOLE
     Dosage: 15 MILLIGRAM, QD
     Route: 048
  14. PRILOSEC [Suspect]
     Active Substance: OMEPRAZOLE MAGNESIUM
     Indication: Gastrooesophageal reflux disease
     Dosage: UNK
     Route: 048
     Dates: start: 198909, end: 201706
  15. PRILOSEC [Suspect]
     Active Substance: OMEPRAZOLE MAGNESIUM
     Dosage: 20 MILLIGRAM, QD
     Route: 048
     Dates: start: 20120101, end: 20141231
  16. PRILOSEC [Suspect]
     Active Substance: OMEPRAZOLE MAGNESIUM
     Dosage: 40 MILLIGRAM, QD
     Route: 048
  17. PRILOSEC [Suspect]
     Active Substance: OMEPRAZOLE MAGNESIUM
     Dosage: 20 MILLIGRAM, QD
     Route: 048
     Dates: start: 20070501, end: 20161013
  18. OMEPRAZOLE MAGNESIUM [Suspect]
     Active Substance: OMEPRAZOLE MAGNESIUM
     Indication: Product used for unknown indication
     Dosage: 20 MILLIGRAM, QD
     Route: 048
  19. OMEPRAZOLE MAGNESIUM [Suspect]
     Active Substance: OMEPRAZOLE MAGNESIUM
     Dosage: UNK
     Route: 048
     Dates: start: 198909, end: 201706
  20. OMEPRAZOLE MAGNESIUM [Suspect]
     Active Substance: OMEPRAZOLE MAGNESIUM
     Dosage: UNK
     Route: 048
     Dates: start: 200705, end: 201610
  21. NEXIUM [Suspect]
     Active Substance: ESOMEPRAZOLE MAGNESIUM
     Indication: Gastrooesophageal reflux disease
     Dosage: UNK
     Route: 048
     Dates: start: 198909, end: 201706
  22. NEXIUM [Suspect]
     Active Substance: ESOMEPRAZOLE MAGNESIUM
     Dosage: 40 MILLIGRAM, QD
     Route: 048
     Dates: start: 20070501, end: 20090101
  23. NEXIUM [Suspect]
     Active Substance: ESOMEPRAZOLE MAGNESIUM
     Dosage: 40 MILLIGRAM, QD
     Route: 048
     Dates: start: 20070501, end: 20161013
  24. NEXIUM 24HR [Suspect]
     Active Substance: ESOMEPRAZOLE MAGNESIUM
     Indication: Product used for unknown indication
     Dosage: 20 MILLIGRAM, QD
     Route: 048
     Dates: start: 198909, end: 201706
  25. ESOMEPRAZOLE [Suspect]
     Active Substance: ESOMEPRAZOLE
     Indication: Product used for unknown indication
     Dosage: UNK
     Route: 048
  26. OMEPRAZOLE [Suspect]
     Active Substance: OMEPRAZOLE
     Indication: Gastrooesophageal reflux disease
     Dosage: UNK
     Route: 048
     Dates: start: 198909, end: 201706
  27. OMEPRAZOLE [Suspect]
     Active Substance: OMEPRAZOLE
     Dosage: UNK
     Route: 048
     Dates: start: 200705, end: 201610
  28. OMEPRAZOLE [Suspect]
     Active Substance: OMEPRAZOLE
     Dosage: 20 MILLIGRAM, QD
     Route: 048
     Dates: start: 2007, end: 201610
  29. LANTUS [Concomitant]
     Active Substance: INSULIN GLARGINE
     Dosage: UNK
  30. LANTUS [Concomitant]
     Active Substance: INSULIN GLARGINE
     Dosage: UNK
  31. FLEXERIL                           /00428402/ [Concomitant]
     Dosage: UNK
  32. FLEXERIL                           /00428402/ [Concomitant]
     Dosage: UNK
  33. HUMALOG [Concomitant]
     Active Substance: INSULIN LISPRO
     Dosage: UNK
  34. HUMALOG [Concomitant]
     Active Substance: INSULIN LISPRO
     Dosage: UNK
  35. FLUCONAZOLE [Concomitant]
     Active Substance: FLUCONAZOLE
     Dosage: UNK
  36. FLUCONAZOLE [Concomitant]
     Active Substance: FLUCONAZOLE
     Dosage: UNK
  37. ACETAMINOPHEN\OXYCODONE HYDROCHLORIDE\OXYCODONE TEREPHTHALATE [Concomitant]
     Active Substance: ACETAMINOPHEN\OXYCODONE HYDROCHLORIDE\OXYCODONE TEREPHTHALATE
     Dosage: UNK
  38. ACETAMINOPHEN\OXYCODONE HYDROCHLORIDE\OXYCODONE TEREPHTHALATE [Concomitant]
     Active Substance: ACETAMINOPHEN\OXYCODONE HYDROCHLORIDE\OXYCODONE TEREPHTHALATE
     Dosage: UNK
  39. ASPIRIN                            /00002701/ [Concomitant]
     Dosage: UNK
  40. ASPIRIN                            /00002701/ [Concomitant]
     Dosage: UNK
  41. BENICAR [Concomitant]
     Active Substance: OLMESARTAN MEDOXOMIL
     Dosage: UNK
  42. BENICAR [Concomitant]
     Active Substance: OLMESARTAN MEDOXOMIL
     Dosage: UNK
  43. HYDROCODONE [Concomitant]
     Active Substance: HYDROCODONE
     Dosage: UNK
  44. HYDROCODONE [Concomitant]
     Active Substance: HYDROCODONE
     Dosage: UNK
  45. ROXICET [Concomitant]
     Active Substance: ACETAMINOPHEN\OXYCODONE HYDROCHLORIDE
     Dosage: UNK
  46. ROXICET [Concomitant]
     Active Substance: ACETAMINOPHEN\OXYCODONE HYDROCHLORIDE
     Dosage: UNK
  47. COMBIVENT [Concomitant]
     Active Substance: ALBUTEROL SULFATE\IPRATROPIUM BROMIDE
     Dosage: UNK
  48. COMBIVENT [Concomitant]
     Active Substance: ALBUTEROL SULFATE\IPRATROPIUM BROMIDE
     Dosage: UNK
  49. AMLODIPINE [Concomitant]
     Active Substance: AMLODIPINE BESYLATE
     Dosage: UNK
  50. AMLODIPINE [Concomitant]
     Active Substance: AMLODIPINE BESYLATE
     Dosage: UNK
  51. ATORVASTATIN [Concomitant]
     Active Substance: ATORVASTATIN
     Dosage: UNK
  52. ATORVASTATIN [Concomitant]
     Active Substance: ATORVASTATIN
     Dosage: UNK
  53. CALCITRIOL [Concomitant]
     Active Substance: CALCITRIOL
     Dosage: UNK
  54. CALCITRIOL [Concomitant]
     Active Substance: CALCITRIOL
     Dosage: UNK
  55. CALCIUM ACETATE [Concomitant]
     Active Substance: CALCIUM ACETATE
     Dosage: UNK
  56. CALCIUM ACETATE [Concomitant]
     Active Substance: CALCIUM ACETATE
     Dosage: UNK
  57. COLACE [Concomitant]
     Active Substance: DOCUSATE SODIUM
     Dosage: UNK
  58. COLACE [Concomitant]
     Active Substance: DOCUSATE SODIUM
     Dosage: UNK
  59. FAMOTIDINE [Concomitant]
     Active Substance: FAMOTIDINE
     Dosage: UNK
  60. FAMOTIDINE [Concomitant]
     Active Substance: FAMOTIDINE
     Dosage: UNK
  61. OLMESARTAN [Concomitant]
     Active Substance: OLMESARTAN
     Dosage: UNK
  62. OLMESARTAN [Concomitant]
     Active Substance: OLMESARTAN
     Dosage: UNK
  63. OXYCODONE [Concomitant]
     Active Substance: OXYCODONE
     Dosage: UNK
  64. OXYCODONE [Concomitant]
     Active Substance: OXYCODONE
     Dosage: UNK

REACTIONS (5)
  - Chronic kidney disease [Fatal]
  - End stage renal disease [Fatal]
  - Acute kidney injury [Fatal]
  - Renal failure [Unknown]
  - Nephrogenic anaemia [Unknown]

NARRATIVE: CASE EVENT DATE: 20120301
